FAERS Safety Report 9776907 (Version 2)
Quarter: 2014Q1

REPORT INFORMATION
  Report Type: Report from Study
  Country: DE (occurrence: DE)
  Receive Date: 20131221
  Receipt Date: 20140124
  Transmission Date: 20141002
  Serious: Yes (Hospitalization)
  Sender: FDA-Public Use
  Company Number: DE-ROCHE-1322207

PATIENT
  Age: 53 Year
  Sex: Female
  Weight: 91 kg

DRUGS (8)
  1. PERTUZUMAB [Suspect]
     Indication: BREAST CANCER
     Dosage: LOADING DOSE
     Route: 042
     Dates: start: 20130805, end: 20130805
  2. PERTUZUMAB [Suspect]
     Dosage: MAINTAINS DOSE,  LAST DOSE PRIOR TO SAE  ON 25/NOV/2013
     Route: 042
     Dates: start: 20130826
  3. TRASTUZUMAB [Suspect]
     Indication: BREAST CANCER
     Dosage: LAST DOSE PRIOR TO SAE 25/NOV/2013
     Route: 042
     Dates: start: 20130805
  4. PACLITAXEL [Suspect]
     Indication: BREAST CANCER
     Dosage: LAST DOSE PRIOR TO SAE 21/OCT/2013
     Route: 042
     Dates: start: 20130805
  5. EPIRUBICIN [Suspect]
     Indication: BREAST CANCER
     Dosage: LAST DOSE PRIOR TO SAE 25/NOV/2013
     Route: 042
     Dates: start: 20131104
  6. CYCLOPHOSPHAMIDE [Suspect]
     Indication: BREAST CANCER
     Dosage: LAST DOSE PRIOT TO SAE 25/NOV/2011
     Route: 042
     Dates: start: 20111104
  7. RAMIPRIL [Concomitant]
     Route: 065
     Dates: start: 201211, end: 20131128
  8. RAMIPRIL [Concomitant]
     Route: 065
     Dates: start: 20131129

REACTIONS (1)
  - Gastritis haemorrhagic [Recovered/Resolved]
